APPROVED DRUG PRODUCT: EMFLAZA
Active Ingredient: DEFLAZACORT
Strength: 6MG
Dosage Form/Route: TABLET;ORAL
Application: N208684 | Product #001 | TE Code: AB
Applicant: PTC THERAPEUTICS INC
Approved: Feb 9, 2017 | RLD: Yes | RS: No | Type: RX

EXCLUSIVITY:
Code: ODE-252 | Date: Jun 7, 2026